FAERS Safety Report 6412875-5 (Version None)
Quarter: 2009Q4

REPORT INFORMATION
  Report Type: 
  Country: None (occurrence: None)
  Receive Date: 20091023
  Receipt Date: 20091012
  Transmission Date: 20100525
  Serious: Yes (Other)
  Sender: FDA-Public Use
  Company Number: PHEH2009US11356

PATIENT
  Sex: Male

DRUGS (7)
  1. DIOVAN [Suspect]
     Dosage: UNK, UNK
     Route: 065
  2. TEKTURNA [Concomitant]
     Indication: HYPERTENSION
     Dosage: 300 MG, QD
     Route: 048
     Dates: start: 20090715
  3. PREVACID [Concomitant]
     Dosage: UNK, UNK
     Route: 065
  4. ZANAFLEX [Concomitant]
     Dosage: UNK, UNK
     Route: 065
  5. CLONIDINE [Concomitant]
     Dosage: UNK, UNK
     Route: 065
  6. PROVIGIL [Concomitant]
     Dosage: UNK, UNK
     Route: 065
  7. LIPITOR [Concomitant]
     Dosage: UNK, UNK
     Route: 065

REACTIONS (2)
  - CONSTIPATION [None]
  - WITHDRAWAL HYPERTENSION [None]
